FAERS Safety Report 4318927-8 (Version None)
Quarter: 2004Q1

REPORT INFORMATION
  Report Type: 
  Country: None (occurrence: None)
  Receive Date: 20040317
  Receipt Date: 20040317
  Transmission Date: 20041129
  Serious: Yes (Hospitalization)
  Sender: FDA-Public Use
  Company Number: None

PATIENT
  Age: 65 Year
  Sex: Female

DRUGS (11)
  1. VIOXX [Suspect]
     Indication: PAIN
     Dosage: 50 MG PO Q DAY
     Route: 048
     Dates: start: 20031212, end: 20031215
  2. ASPIRIN [Concomitant]
  3. OMEPRAZOLE [Concomitant]
  4. AMIODARONE HCL [Concomitant]
  5. PSEUDOEPHEDRINE HCL [Concomitant]
  6. FUROSEMIDE [Concomitant]
  7. CITALOPRIM [Concomitant]
  8. NAPROXEN [Concomitant]
  9. FOLIC ACID [Concomitant]
  10. FE-TINIC [Concomitant]
  11. HUMULIN 70/30 [Concomitant]

REACTIONS (2)
  - CARDIAC FAILURE CONGESTIVE [None]
  - CONDITION AGGRAVATED [None]
